FAERS Safety Report 6939638-6 (Version None)
Quarter: 2010Q3

REPORT INFORMATION
  Report Type: 
  Country: None (occurrence: None)
  Receive Date: 20100825
  Receipt Date: 20100820
  Transmission Date: 20110219
  Serious: Yes (Death, Other)
  Sender: FDA-Public Use
  Company Number: KR-BRISTOL-MYERS SQUIBB COMPANY-15249113

PATIENT
  Age: 67 Year
  Sex: Female

DRUGS (4)
  1. CISPLATIN [Suspect]
     Indication: LUNG NEOPLASM MALIGNANT
  2. CISPLATIN [Suspect]
     Indication: METASTASES TO LIVER
  3. ETOPOSIDE [Suspect]
     Indication: LUNG NEOPLASM MALIGNANT
  4. ETOPOSIDE [Suspect]
     Indication: METASTASES TO LIVER

REACTIONS (2)
  - ARTERIAL THROMBOSIS LIMB [None]
  - DEATH [None]
